FAERS Safety Report 18038361 (Version 1)
Quarter: 2020Q3

REPORT INFORMATION
  Report Type: Report from Study
  Country: HN (occurrence: HN)
  Receive Date: 20200717
  Receipt Date: 20200717
  Transmission Date: 20201103
  Serious: Yes (Hospitalization)
  Sender: FDA-Public Use
  Company Number: NVSC2020HN201249

PATIENT
  Age: 68 Year
  Sex: Male
  Weight: 58.05 kg

DRUGS (1)
  1. VYMADA [Suspect]
     Active Substance: SACUBITRIL\VALSARTAN
     Indication: PRODUCT USED FOR UNKNOWN INDICATION
     Dosage: 1 DF, QD
     Route: 065
     Dates: start: 201911

REACTIONS (2)
  - Weight increased [Unknown]
  - Polyuria [Unknown]

NARRATIVE: CASE EVENT DATE: 202005
